FAERS Safety Report 7321998-8 (Version None)
Quarter: 2011Q1

REPORT INFORMATION
  Report Type: 
  Country: None (occurrence: None)
  Receive Date: 20110228
  Receipt Date: 20110220
  Transmission Date: 20110831
  Serious: Yes (Other)
  Sender: FDA-Public Use
  Company Number: US-BAXTER-2011BH004790

PATIENT
  Sex: Male

DRUGS (5)
  1. DOXORUBICIN HCL [Suspect]
     Indication: PROSTATE CANCER
     Route: 065
  2. CYCLOPHOSPHAMIDE [Suspect]
     Indication: OFF LABEL USE
     Route: 048
  3. CYCLOPHOSPHAMIDE [Suspect]
     Indication: PROSTATE CANCER
     Route: 048
  4. NEUPOGEN [Suspect]
     Indication: PROSTATE CANCER
     Route: 042
  5. DOCETAXEL [Suspect]
     Indication: PROSTATE CANCER
     Route: 065

REACTIONS (1)
  - DRUG INEFFECTIVE [None]
